FAERS Safety Report 23589781 (Version 1)
Quarter: 2024Q1

REPORT INFORMATION
  Report Type: Spontaneous
  Country: BG (occurrence: BG)
  Receive Date: 20240304
  Receipt Date: 20240304
  Transmission Date: 20240410
  Serious: Yes (Hospitalization, Other)
  Sender: FDA-Public Use
  Company Number: BG-BoehringerIngelheim-2024-BI-007548

PATIENT
  Age: 80 Year
  Sex: Male

DRUGS (5)
  1. PRADAXA [Suspect]
     Active Substance: DABIGATRAN ETEXILATE MESYLATE
     Indication: International normalised ratio abnormal
     Dates: end: 20231218
  2. PRADAXA [Suspect]
     Active Substance: DABIGATRAN ETEXILATE MESYLATE
     Indication: Activated partial thromboplastin time abnormal
  3. PRADAXA [Suspect]
     Active Substance: DABIGATRAN ETEXILATE MESYLATE
     Indication: Blood fibrinogen abnormal
  4. PRADAXA [Suspect]
     Active Substance: DABIGATRAN ETEXILATE MESYLATE
     Indication: Blood creatine abnormal
  5. PERINDOPRIL [Concomitant]
     Active Substance: PERINDOPRIL

REACTIONS (8)
  - Gastrointestinal haemorrhage [Recovered/Resolved]
  - Melaena [Recovered/Resolved]
  - Melaena [Recovered/Resolved]
  - Epistaxis [Recovered/Resolved]
  - Epistaxis [Recovered/Resolved]
  - Haematuria [Recovered/Resolved]
  - Gastritis erosive [Recovered/Resolved]
  - Procoagulant therapy [Recovered/Resolved]

NARRATIVE: CASE EVENT DATE: 20231211
